FAERS Safety Report 20556377 (Version 3)
Quarter: 2022Q2

REPORT INFORMATION
  Report Type: Report from Study
  Country: US (occurrence: US)
  Receive Date: 20220305
  Receipt Date: 20220422
  Transmission Date: 20220721
  Serious: Yes (Hospitalization)
  Sender: FDA-Public Use
  Company Number: US-NOVARTISPH-NVSC2022US051780

PATIENT
  Sex: Female

DRUGS (1)
  1. ENTRESTO [Suspect]
     Active Substance: SACUBITRIL\VALSARTAN
     Indication: Product used for unknown indication
     Dosage: TAKING ENTRESTO FOR ABOUT A YEAR
     Route: 065
     Dates: start: 2021

REACTIONS (4)
  - Pneumonia [Recovered/Resolved]
  - Cough [Unknown]
  - Pyrexia [Unknown]
  - Dyspnoea [Unknown]
